FAERS Safety Report 12359486 (Version 1)
Quarter: 2016Q2

REPORT INFORMATION
  Report Type: Spontaneous
  Country: US (occurrence: None)
  Receive Date: 20160511
  Receipt Date: 20160511
  Transmission Date: 20160815
  Serious: No
  Sender: FDA-Public Use
  Company Number: None

PATIENT
  Age: 52 Year
  Sex: Female

DRUGS (1)
  1. HARVONI [Suspect]
     Active Substance: LEDIPASVIR\SOFOSBUVIR
     Indication: HEPATITIS C
     Dosage: 1 TABLETS QD PO
     Route: 048
     Dates: start: 20160501

REACTIONS (3)
  - Negative thoughts [None]
  - Neck pain [None]
  - Headache [None]

NARRATIVE: CASE EVENT DATE: 201605
